FAERS Safety Report 8191835-0 (Version None)
Quarter: 2012Q1

REPORT INFORMATION
  Report Type: 
  Country: None (occurrence: None)
  Receive Date: 20120307
  Receipt Date: 20120228
  Transmission Date: 20120608
  Serious: Yes (Hospitalization, Other)
  Sender: FDA-Public Use
  Company Number: PHHY2011CA89088

PATIENT
  Sex: Female

DRUGS (6)
  1. ANTIBIOTICS [Concomitant]
  2. SPIRIVA [Concomitant]
     Indication: ASTHMA
  3. ATIVAN [Concomitant]
     Dosage: 1 MG, DAILY PRN
     Route: 048
  4. CLOZARIL [Suspect]
     Indication: SCHIZOPHRENIA
     Dosage: 500 MG / DAY PRN
     Route: 048
     Dates: start: 20050630
  5. PREDNISONE [Concomitant]
     Indication: ASTHMA
     Dosage: UNK
     Dates: start: 20111201
  6. ADVAIR DISKUS 100/50 [Concomitant]
     Indication: ASTHMA

REACTIONS (11)
  - PRODUCTIVE COUGH [None]
  - ACIDOSIS [None]
  - BODY TEMPERATURE INCREASED [None]
  - PYREXIA [None]
  - RESPIRATORY DEPRESSION [None]
  - DYSPNOEA [None]
  - HEART RATE INCREASED [None]
  - SOMNOLENCE [None]
  - NEUTROPHIL COUNT DECREASED [None]
  - WHITE BLOOD CELL COUNT DECREASED [None]
  - HYPERTENSION [None]
